FAERS Safety Report 14263571 (Version 5)
Quarter: 2018Q4

REPORT INFORMATION
  Report Type: Spontaneous
  Country: US (occurrence: US)
  Receive Date: 20171208
  Receipt Date: 20181001
  Transmission Date: 20190204
  Serious: No
  Sender: FDA-Public Use
  Company Number: US-PFIZER INC-2017525911

PATIENT
  Age: 13 Year
  Sex: Female
  Weight: 31 kg

DRUGS (3)
  1. CHILDRENS ADVIL [Suspect]
     Active Substance: IBUPROFEN
     Indication: ORAL PAIN
     Dosage: 20 MG, UNK
  2. CHILDRENS ADVIL [Suspect]
     Active Substance: IBUPROFEN
     Indication: COUGH
     Dosage: UNK, SINGLE
     Route: 048
     Dates: start: 20171203, end: 20171203
  3. LACTOSE [Concomitant]
     Active Substance: LACTOSE
     Dosage: UNK UNK, LACTOSE PILLS AS NEEDED

REACTIONS (2)
  - Product physical consistency issue [Recovered/Resolved]
  - Product administered to patient of inappropriate age [Recovered/Resolved]

NARRATIVE: CASE EVENT DATE: 20171203
